FAERS Safety Report 25322169 (Version 1)
Quarter: 2025Q2

REPORT INFORMATION
  Report Type: Report from Study
  Country: CA (occurrence: CA)
  Receive Date: 20250516
  Receipt Date: 20250516
  Transmission Date: 20250717
  Serious: Yes (Hospitalization)
  Sender: BOEHRINGER INGELHEIM
  Company Number: CA-BoehringerIngelheim-2023-BI-262953

PATIENT
  Age: 79 Year
  Sex: Female

DRUGS (2)
  1. OFEV [Suspect]
     Active Substance: NINTEDANIB
     Indication: Idiopathic pulmonary fibrosis
     Dates: start: 20221201
  2. OFEV [Suspect]
     Active Substance: NINTEDANIB
     Dates: start: 20231104

REACTIONS (17)
  - Atrial fibrillation [Unknown]
  - Alopecia [Recovering/Resolving]
  - Atrial fibrillation [Unknown]
  - Dysphonia [Unknown]
  - Constipation [Unknown]
  - Diarrhoea [Not Recovered/Not Resolved]
  - Blood cholesterol increased [Unknown]
  - Cough [Not Recovered/Not Resolved]
  - Eructation [Not Recovered/Not Resolved]
  - Gastrointestinal disorder [Not Recovered/Not Resolved]
  - Hypertension [Not Recovered/Not Resolved]
  - Hypothyroidism [Not Recovered/Not Resolved]
  - Osteoporosis [Not Recovered/Not Resolved]
  - Anaemia [Not Recovered/Not Resolved]
  - Asthma [Not Recovered/Not Resolved]
  - Weight decreased [Not Recovered/Not Resolved]
  - Weight decreased [Recovered/Resolved]

NARRATIVE: CASE EVENT DATE: 20221201
